FAERS Safety Report 15313802 (Version 1)
Quarter: 2018Q3

REPORT INFORMATION
  Report Type: Spontaneous
  Country: US (occurrence: US)
  Receive Date: 20180824
  Receipt Date: 20180824
  Transmission Date: 20181010
  Serious: Yes (Other)
  Sender: FDA-Public Use
  Company Number: US-TEVA-2018-US-945892

PATIENT
  Sex: Female

DRUGS (1)
  1. CLONAZEPAM. [Suspect]
     Active Substance: CLONAZEPAM
     Indication: SEIZURE
     Route: 065
     Dates: start: 2006

REACTIONS (14)
  - Muscle twitching [Unknown]
  - Muscle spasms [Unknown]
  - Feeling abnormal [Unknown]
  - Drug ineffective [Unknown]
  - Seizure [Unknown]
  - Withdrawal syndrome [Unknown]
  - Product taste abnormal [Unknown]
  - Abdominal pain upper [Unknown]
  - Mental impairment [Unknown]
  - Vertigo [Unknown]
  - Disturbance in attention [Unknown]
  - Chest pain [Unknown]
  - Dysstasia [Unknown]
  - Fibromyalgia [Unknown]

NARRATIVE: CASE EVENT DATE: 2018
